FAERS Safety Report 21674972 (Version 1)
Quarter: 2022Q4

REPORT INFORMATION
  Report Type: Report from Study
  Country: US (occurrence: US)
  Receive Date: 20221202
  Receipt Date: 20221202
  Transmission Date: 20230112
  Serious: Yes (Other)
  Sender: FDA-Public Use
  Company Number: US-BAYER-2022A165656

PATIENT

DRUGS (13)
  1. MOXIFLOXACIN [Suspect]
     Active Substance: MOXIFLOXACIN
     Dosage: UNK
  2. BEDAQUILINE [Suspect]
     Active Substance: BEDAQUILINE
  3. PRETOMANID [Suspect]
     Active Substance: PRETOMANID
  4. LINEZOLID [Suspect]
     Active Substance: LINEZOLID
  5. ISONIAZID [Suspect]
     Active Substance: ISONIAZID
  6. RIFAMPIN [Suspect]
     Active Substance: RIFAMPIN
  7. AMIKACIN [Suspect]
     Active Substance: AMIKACIN
  8. CLOFAZIMINE [Suspect]
     Active Substance: CLOFAZIMINE
  9. CYCLOSERINE [Suspect]
     Active Substance: CYCLOSERINE
  10. ETHAMBUTOL [Suspect]
     Active Substance: ETHAMBUTOL HYDROCHLORIDE
  11. ETHIONAMIDE [Suspect]
     Active Substance: ETHIONAMIDE
  12. PYRAZINAMIDE [Suspect]
     Active Substance: PYRAZINAMIDE
  13. PARA-AMINOSALICYLIC ACID [Suspect]
     Active Substance: AMINOSALICYLIC ACID

REACTIONS (3)
  - Drug resistance [None]
  - Neuropathy peripheral [None]
  - Off label use [None]
